FAERS Safety Report 26192915 (Version 1)
Quarter: 2025Q4

REPORT INFORMATION
  Report Type: Spontaneous
  Country: US (occurrence: None)
  Receive Date: 20251223
  Receipt Date: 20251223
  Transmission Date: 20260118
  Serious: Yes (Hospitalization)
  Sender: FDA-CTU
  Company Number: None

PATIENT
  Sex: Female

DRUGS (9)
  1. DALFAMPRIDINE [Suspect]
     Active Substance: DALFAMPRIDINE
     Indication: Multiple sclerosis
     Dosage: FREQUENCY : EVERY 12 HOURS;
     Route: 048
     Dates: start: 20220722
  2. VITAMINS [Concomitant]
     Active Substance: VITAMINS
  3. SOLIFENACIN [Concomitant]
     Active Substance: SOLIFENACIN
  4. DESMOPRESSIN [Concomitant]
     Active Substance: DESMOPRESSIN
  5. MELOXICAM [Concomitant]
     Active Substance: MELOXICAM
  6. VITAMIN D [Concomitant]
     Active Substance: VITAMIN D NOS
  7. AMLODIPINE BESYLATE [Concomitant]
     Active Substance: AMLODIPINE BESYLATE
  8. GABAPENTI N [Concomitant]
  9. ROPINIROLE [Suspect]
     Active Substance: ROPINIROLE

REACTIONS (6)
  - Multiple sclerosis [None]
  - Progressive multiple sclerosis [None]
  - Mobility decreased [None]
  - Balance disorder [None]
  - Mental impairment [None]
  - Anhedonia [None]
